FAERS Safety Report 4567028-2 (Version None)
Quarter: 2005Q1

REPORT INFORMATION
  Report Type: 
  Country: None (occurrence: None)
  Receive Date: 20050201
  Receipt Date: 20040907
  Transmission Date: 20050727
  Serious: No
  Sender: FDA-Public Use
  Company Number: US-BRISTOL-MYERS SQUIBB COMPANY-12694147

PATIENT
  Sex: Female

DRUGS (1)
  1. STADOL [Suspect]
     Route: 045

REACTIONS (2)
  - DRUG SCREEN FALSE POSITIVE [None]
  - PREGNANCY [None]
